FAERS Safety Report 20369150 (Version 2)
Quarter: 2022Q1

REPORT INFORMATION
  Report Type: Spontaneous
  Country: JP (occurrence: JP)
  Receive Date: 20220124
  Receipt Date: 20220131
  Transmission Date: 20220424
  Serious: Yes (Death)
  Sender: FDA-Public Use
  Company Number: JP-CELGENE-JPN-20220105108

PATIENT
  Age: 70 Year
  Sex: Male

DRUGS (4)
  1. POMALYST [Suspect]
     Active Substance: POMALIDOMIDE
     Indication: Plasma cell myeloma
     Dosage: 2 MILLIGRAM
     Route: 048
     Dates: start: 20210618, end: 20210620
  2. ONCOVIN [Suspect]
     Active Substance: VINCRISTINE SULFATE
     Indication: Product used for unknown indication
     Route: 041
     Dates: start: 20210521, end: 20210618
  3. BENDAMUSTINE HYDROCHLORIDE [Suspect]
     Active Substance: BENDAMUSTINE HYDROCHLORIDE
     Indication: Product used for unknown indication
     Route: 041
     Dates: start: 20210607, end: 20210608
  4. RANIMUSTINE [Suspect]
     Active Substance: RANIMUSTINE
     Indication: Product used for unknown indication
     Route: 041
     Dates: start: 20210618, end: 20210618

REACTIONS (1)
  - Cardiac amyloidosis [Fatal]

NARRATIVE: CASE EVENT DATE: 20210623
